FAERS Safety Report 7012128-0 (Version None)
Quarter: 2010Q3

REPORT INFORMATION
  Report Type: 
  Country: None (occurrence: None)
  Receive Date: 20100922
  Receipt Date: 20100922
  Transmission Date: 20110219
  Serious: No
  Sender: FDA-Public Use
  Company Number: None

PATIENT
  Age: 63 Year
  Sex: Female
  Weight: 58.9676 kg

DRUGS (2)
  1. CIPROFLOXACIN [Suspect]
     Indication: ESCHERICHIA TEST POSITIVE
     Dosage: 1 TAB DAILY 5 DAYS
     Dates: start: 20091005
  2. CIPROFLOXACIN [Suspect]
     Indication: ESCHERICHIA TEST POSITIVE
     Dosage: 1 TAB DAILY 5 DAYS
     Dates: start: 20091009

REACTIONS (2)
  - PRURITUS [None]
  - SKIN MASS [None]
